FAERS Safety Report 25936619 (Version 1)
Quarter: 2025Q4

REPORT INFORMATION
  Report Type: Spontaneous
  Country: US (occurrence: None)
  Receive Date: 20251017
  Receipt Date: 20251017
  Transmission Date: 20260118
  Serious: Yes (Other)
  Sender: FDA-CTU
  Company Number: None

PATIENT
  Age: 55 Year
  Sex: Female
  Weight: 70 kg

DRUGS (1)
  1. CIPAGLUCOSIDASE ALFA [Suspect]
     Active Substance: CIPAGLUCOSIDASE ALFA

REACTIONS (3)
  - Urticaria [None]
  - Infusion related reaction [None]
  - Therapy cessation [None]

NARRATIVE: CASE EVENT DATE: 20250925
